FAERS Safety Report 17971570 (Version 1)
Quarter: 2020Q3

REPORT INFORMATION
  Report Type: Spontaneous
  Country: US (occurrence: US)
  Receive Date: 20200702
  Receipt Date: 20200702
  Transmission Date: 20201103
  Serious: Yes (Other)
  Sender: FDA-Public Use
  Company Number: US-SA-2020SA168028

PATIENT

DRUGS (4)
  1. FLONASE SENSIMIST ALLERGY RELIEF [Concomitant]
     Active Substance: FLUTICASONE FUROATE
     Indication: NASAL POLYPS
     Dosage: UNK
  2. ASMANEX [Concomitant]
     Active Substance: MOMETASONE FUROATE
     Indication: ASTHMA
     Dosage: UNK
  3. SINGULAIR [Concomitant]
     Active Substance: MONTELUKAST SODIUM
     Indication: ASTHMA
     Dosage: UNK
  4. DUPIXENT [Suspect]
     Active Substance: DUPILUMAB
     Indication: ASTHMA
     Dosage: UNK

REACTIONS (8)
  - Respiratory distress [Unknown]
  - Nasal congestion [Unknown]
  - Dyspnoea [Unknown]
  - Sleep disorder [Unknown]
  - Cough [Unknown]
  - Chest discomfort [Unknown]
  - Upper-airway cough syndrome [Unknown]
  - Sinus operation [Unknown]
